FAERS Safety Report 5517776-2 (Version None)
Quarter: 2007Q4

REPORT INFORMATION
  Report Type: 
  Country: None (occurrence: None)
  Receive Date: 20071114
  Receipt Date: 20070501
  Transmission Date: 20080405
  Serious: Yes (Hospitalization)
  Sender: FDA-Public Use
  Company Number: US-MERCK-0704USA04779

PATIENT
  Age: 49 Year
  Sex: Female
  Weight: 95 kg

DRUGS (7)
  1. JANUVIA [Suspect]
     Indication: TYPE 2 DIABETES MELLITUS
     Route: 048
     Dates: start: 20070314, end: 20070401
  2. AVANDIA [Concomitant]
     Route: 065
  3. GLUCOPHAGE [Concomitant]
     Route: 065
     Dates: end: 20070314
  4. LIPITOR [Concomitant]
     Route: 065
  5. LOTENSIN [Concomitant]
     Route: 065
  6. EFFEXOR XR [Concomitant]
     Route: 065
  7. REQUIP [Concomitant]
     Route: 065

REACTIONS (9)
  - BLOOD GLUCOSE INCREASED [None]
  - DIZZINESS [None]
  - FALL [None]
  - JOINT SPRAIN [None]
  - MUSCULOSKELETAL CHEST PAIN [None]
  - NECK INJURY [None]
  - RADIUS FRACTURE [None]
  - VAGINITIS BACTERIAL [None]
  - VULVOVAGINAL MYCOTIC INFECTION [None]
